FAERS Safety Report 6686081-3 (Version None)
Quarter: 2010Q2

REPORT INFORMATION
  Report Type: 
  Country: None (occurrence: None)
  Receive Date: 20100419
  Receipt Date: 20100408
  Transmission Date: 20101027
  Serious: Yes (Hospitalization)
  Sender: FDA-Public Use
  Company Number: US-JNJFOC-20100403250

PATIENT
  Sex: Male
  Weight: 96.16 kg

DRUGS (11)
  1. DURAGESIC-100 [Suspect]
     Indication: NECK PAIN
     Route: 062
  2. DURAGESIC-100 [Suspect]
     Route: 062
  3. DURAGESIC-100 [Suspect]
     Indication: BACK PAIN
     Route: 062
  4. DURAGESIC-100 [Suspect]
     Route: 062
  5. FENTANYL [Suspect]
     Indication: NECK PAIN
     Route: 062
  6. FENTANYL [Suspect]
     Indication: BACK PAIN
     Route: 062
  7. DURAGESIC-100 [Suspect]
     Route: 062
  8. DURAGESIC-100 [Suspect]
     Route: 062
  9. LOWASA [Concomitant]
     Indication: CARDIAC DISORDER
     Route: 048
  10. LAXATIVE [Concomitant]
     Indication: CONSTIPATION
     Route: 048
  11. VITAMIN B-12 [Concomitant]
     Indication: NUTRITIONAL SUPPORT
     Route: 048

REACTIONS (7)
  - ARTHRALGIA [None]
  - CHEST PAIN [None]
  - DRUG ADMINISTERED AT INAPPROPRIATE SITE [None]
  - HYPERTENSION [None]
  - MUSCULOSKELETAL DISORDER [None]
  - PRODUCT ADHESION ISSUE [None]
  - WRONG TECHNIQUE IN DRUG USAGE PROCESS [None]
